FAERS Safety Report 26101603 (Version 1)
Quarter: 2025Q4

REPORT INFORMATION
  Report Type: Report from Study
  Country: EU (occurrence: EU)
  Receive Date: 20251128
  Receipt Date: 20251128
  Transmission Date: 20260117
  Serious: Yes (Life-Threatening, Hospitalization)
  Sender: RANBAXY
  Company Number: EU-ALMIRALL-DE-2025-4317

PATIENT
  Sex: Male

DRUGS (2)
  1. TILDRAKIZUMAB [Suspect]
     Active Substance: TILDRAKIZUMAB
     Indication: Psoriasis
     Dosage: 100 MILLIGRAM
     Route: 058
     Dates: start: 20230215
  2. TILDRAKIZUMAB [Suspect]
     Active Substance: TILDRAKIZUMAB
     Indication: Psoriatic arthropathy

REACTIONS (1)
  - Myocardial infarction [Recovered/Resolved]

NARRATIVE: CASE EVENT DATE: 20240903
